FAERS Safety Report 23714740 (Version 1)
Quarter: 2024Q2

REPORT INFORMATION
  Report Type: Report from Study
  Country: US (occurrence: US)
  Receive Date: 20240406
  Receipt Date: 20240406
  Transmission Date: 20240716
  Serious: Yes (Hospitalization, Other)
  Sender: FDA-Public Use
  Company Number: US-ABBVIE-5704706

PATIENT
  Age: 53 Year
  Sex: Female

DRUGS (2)
  1. RINVOQ [Suspect]
     Active Substance: UPADACITINIB
     Indication: Mixed connective tissue disease
     Route: 048
     Dates: start: 20210101
  2. PREDNISONE [Suspect]
     Active Substance: PREDNISONE
     Indication: Product used for unknown indication
     Route: 065

REACTIONS (20)
  - Osteoporosis [Not Recovered/Not Resolved]
  - Nasal congestion [Not Recovered/Not Resolved]
  - White blood cell count increased [Not Recovered/Not Resolved]
  - Nephrolithiasis [Not Recovered/Not Resolved]
  - Mixed connective tissue disease [Not Recovered/Not Resolved]
  - Oral candidiasis [Unknown]
  - Blood cholesterol increased [Not Recovered/Not Resolved]
  - Red blood cell abnormality [Not Recovered/Not Resolved]
  - Thrombosis [Not Recovered/Not Resolved]
  - Pulmonary fibrosis [Not Recovered/Not Resolved]
  - Arteriosclerosis [Unknown]
  - Product use in unapproved indication [Not Recovered/Not Resolved]
  - Osteopenia [Not Recovered/Not Resolved]
  - Foot fracture [Not Recovered/Not Resolved]
  - Swelling face [Not Recovered/Not Resolved]
  - Dental caries [Not Recovered/Not Resolved]
  - Abscess [Not Recovered/Not Resolved]
  - Dyspnoea [Not Recovered/Not Resolved]
  - Bedridden [Not Recovered/Not Resolved]
  - Scleroderma [Unknown]

NARRATIVE: CASE EVENT DATE: 20240101
